FAERS Safety Report 7914496-1 (Version None)
Quarter: 2011Q4

REPORT INFORMATION
  Report Type: 
  Country: None (occurrence: None)
  Receive Date: 20111115
  Receipt Date: 20111115
  Transmission Date: 20120403
  Serious: Yes (Hospitalization)
  Sender: FDA-Public Use
  Company Number: US-JNJFOC-20110908525

PATIENT
  Sex: Female
  Weight: 45.36 kg

DRUGS (3)
  1. PANCREAZE [Suspect]
     Route: 048
     Dates: start: 20110101
  2. PANCREAZE [Suspect]
     Indication: PANCREATIC CARCINOMA
     Route: 048
     Dates: start: 20100901
  3. PANCREAZE [Suspect]
     Route: 048
     Dates: start: 20100701

REACTIONS (3)
  - PRODUCT QUALITY ISSUE [None]
  - NEOPLASM MALIGNANT [None]
  - HOSPITALISATION [None]
